FAERS Safety Report 17864428 (Version 1)
Quarter: 2020Q2

REPORT INFORMATION
  Report Type: Spontaneous
  Country: US (occurrence: US)
  Receive Date: 20200604
  Receipt Date: 20200604
  Transmission Date: 20200714
  Serious: Yes (Other)
  Sender: FDA-Public Use
  Company Number: None

PATIENT
  Age: 51 Year
  Sex: Female

DRUGS (1)
  1. BUPROPION HCL XL 300MG [Suspect]
     Active Substance: BUPROPION HYDROCHLORIDE
     Indication: BIPOLAR DISORDER
     Dosage: ?          QUANTITY:1 TABLET(S);?
     Route: 048
     Dates: start: 20200502, end: 20200601

REACTIONS (10)
  - Mental disorder [None]
  - Mood altered [None]
  - Agitation [None]
  - Hyperhidrosis [None]
  - Anger [None]
  - Suicidal ideation [None]
  - Anxiety [None]
  - Product quality issue [None]
  - Aggression [None]
  - Depression [None]

NARRATIVE: CASE EVENT DATE: 20200525
